FAERS Safety Report 6314180-4 (Version None)
Quarter: 2009Q3

REPORT INFORMATION
  Report Type: 
  Country: None (occurrence: None)
  Receive Date: 20090818
  Receipt Date: 20090814
  Transmission Date: 20100115
  Serious: Yes (Death)
  Sender: FDA-Public Use
  Company Number: PHEH2009US09349

PATIENT
  Sex: Male

DRUGS (2)
  1. ZOMETA [Suspect]
     Indication: METASTASIS
     Dosage: 4 MG, EVERY 3 WEEKS
     Route: 042
  2. ZOMETA [Suspect]
     Dosage: 4 MG, EVERY 6 WEEKS
     Route: 042
     Dates: start: 20080507

REACTIONS (1)
  - DEATH [None]
